FAERS Safety Report 10021360 (Version 1)
Quarter: 2014Q1

REPORT INFORMATION
  Report Type: Spontaneous
  Country: NG (occurrence: NG)
  Receive Date: 20140319
  Receipt Date: 20140319
  Transmission Date: 20141002
  Serious: Yes (Life-Threatening, Hospitalization)
  Sender: FDA-Public Use
  Company Number: NG-MYLANLABS-2014S1005254

PATIENT
  Age: 50 Year
  Sex: Male

DRUGS (11)
  1. TENECTEPLASE [Suspect]
     Indication: THROMBOLYSIS
     Route: 065
  2. LISINOPRIL [Suspect]
     Indication: CARDIAC ANEURYSM
     Dosage: 20MG DAILY
     Route: 065
  3. LISINOPRIL [Suspect]
     Indication: OFF LABEL USE
     Dosage: 20MG DAILY
     Route: 065
  4. ASPIRIN [Concomitant]
     Indication: ACUTE MYOCARDIAL INFARCTION
     Dosage: 300MG STAT (CHEWABLE)
     Route: 065
  5. MORPHINE [Concomitant]
     Indication: ACUTE MYOCARDIAL INFARCTION
     Dosage: 10MG STAT
     Route: 042
  6. ISOSORBIDE MONONITRATE [Concomitant]
     Indication: ACUTE MYOCARDIAL INFARCTION
     Dosage: 2 DOSES OF 400MICROG
     Route: 060
  7. CARVEDILOL [Concomitant]
     Indication: CARDIAC ANEURYSM
     Dosage: TITRATED TO 12.5MG BD
     Route: 065
  8. CARVEDILOL [Concomitant]
     Indication: CARDIAC ANEURYSM
     Route: 065
  9. ATORVASTATIN [Concomitant]
     Dosage: 40MG DAILY
     Route: 065
  10. CLEXANE [Concomitant]
     Indication: ANTICOAGULANT THERAPY
     Route: 058
  11. WARFARIN [Concomitant]
     Indication: ANTICOAGULANT THERAPY
     Dosage: 5MG DAILY; TITRATED TO ACHIEVE INR OF 2.5
     Route: 048

REACTIONS (5)
  - Treatment failure [Recovering/Resolving]
  - Left ventricular dysfunction [Recovering/Resolving]
  - Cardiac ventricular thrombosis [Recovered/Resolved]
  - Cardiac aneurysm [Recovering/Resolving]
  - Hypotension [Recovering/Resolving]
